FAERS Safety Report 9966565 (Version 2)
Quarter: 2014Q1

REPORT INFORMATION
  Report Type: Report from Study
  Country: US (occurrence: US)
  Receive Date: 20140305
  Receipt Date: 20140305
  Transmission Date: 20141002
  Serious: Yes (Other)
  Sender: FDA-Public Use
  Company Number: US-ABBVIE-13P-163-1092567-00

PATIENT
  Age: 53 Year
  Sex: Male

DRUGS (10)
  1. HUMIRA [Suspect]
     Indication: ANKYLOSING SPONDYLITIS
     Dates: start: 200908
  2. HUMIRA [Suspect]
  3. UNKNOWN PAIN MEDICATION [Concomitant]
     Indication: ANKYLOSING SPONDYLITIS
  4. UNKNOWN PAIN MEDICATION [Concomitant]
     Indication: ANKYLOSING SPONDYLITIS
  5. LISINOPRIL [Concomitant]
     Indication: HYPERTENSION
     Dosage: DAILY
  6. PROZAC [Concomitant]
     Indication: DEPRESSION
     Dosage: DAILY
  7. METOPROLOL [Concomitant]
     Indication: HYPERTENSION
  8. MORPHINE [Concomitant]
     Indication: PAIN
  9. MORPHINE [Concomitant]
     Indication: PAIN
  10. SULFASALAZINE [Concomitant]
     Indication: PRODUCT USED FOR UNKNOWN INDICATION

REACTIONS (6)
  - Bladder transitional cell carcinoma [Recovered/Resolved]
  - Injection site pain [Recovering/Resolving]
  - Injection site erythema [Recovering/Resolving]
  - Injection site swelling [Recovering/Resolving]
  - Pain [Recovering/Resolving]
  - Ankylosing spondylitis [Recovering/Resolving]
